FAERS Safety Report 4433996-2 (Version None)
Quarter: 2004Q3

REPORT INFORMATION
  Report Type: 
  Country: None (occurrence: None)
  Receive Date: 20040825
  Receipt Date: 20040818
  Transmission Date: 20050211
  Serious: Yes (Hospitalization)
  Sender: FDA-Public Use
  Company Number: TPA2004A01012

PATIENT
  Age: 62 Year
  Sex: Female
  Weight: 71.2147 kg

DRUGS (4)
  1. ACTOS [Suspect]
     Indication: DIABETES MELLITUS NON-INSULIN-DEPENDENT
     Dosage: 30 MG, 1 IN 1 D, PER ORAL
     Route: 048
     Dates: start: 19990101
  2. TOPROL-XL [Concomitant]
  3. LEVOXYL [Concomitant]
  4. HYDROCODONE/APAP (PROCET/USA/) [Concomitant]

REACTIONS (4)
  - GASTRIC DISORDER [None]
  - HAEMATOMA [None]
  - OSTEOARTHRITIS [None]
  - ROTATOR CUFF SYNDROME [None]
